FAERS Safety Report 5563048-X (Version None)
Quarter: 2007Q4

REPORT INFORMATION
  Report Type: 
  Country: None (occurrence: None)
  Receive Date: 20071217
  Receipt Date: 20071211
  Transmission Date: 20080405
  Serious: Yes (Other)
  Sender: FDA-Public Use
  Company Number: A0683946A

PATIENT
  Age: 68 Year
  Sex: Female
  Weight: 70.5 kg

DRUGS (7)
  1. TYKERB [Suspect]
     Indication: BREAST CANCER
     Dosage: 1250MG PER DAY
     Route: 048
     Dates: start: 20070701
  2. GEMZAR [Suspect]
     Indication: BREAST CANCER
     Dosage: 1730MG WEEKLY
     Route: 065
     Dates: start: 20070731
  3. LESCOL [Concomitant]
  4. LOTREL [Concomitant]
  5. LIPITOR [Concomitant]
  6. HYDROCHLOROTHIAZIDE [Concomitant]
  7. CYMBALTA [Concomitant]

REACTIONS (6)
  - FATIGUE [None]
  - INSOMNIA [None]
  - RASH GENERALISED [None]
  - RASH PRURITIC [None]
  - VISUAL ACUITY REDUCED [None]
  - VISUAL DISTURBANCE [None]
